FAERS Safety Report 6115937-5 (Version None)
Quarter: 2009Q1

REPORT INFORMATION
  Report Type: 
  Country: None (occurrence: None)
  Receive Date: 20090311
  Receipt Date: 20090304
  Transmission Date: 20090719
  Serious: Yes (Other)
  Sender: FDA-Public Use
  Company Number: 2009SP004842

PATIENT
  Age: 50 Year
  Sex: Male

DRUGS (1)
  1. DESLORATADINE [Suspect]
     Indication: HYPERSENSITIVITY
     Dosage: 5 MG;QD;PO
     Route: 048
     Dates: start: 20070305, end: 20070308

REACTIONS (1)
  - DEPRESSION [None]
